FAERS Safety Report 21750088 (Version 1)
Quarter: 2022Q4

REPORT INFORMATION
  Report Type: Spontaneous
  Country: FR (occurrence: FR)
  Receive Date: 20221219
  Receipt Date: 20221219
  Transmission Date: 20230112
  Serious: Yes (Other)
  Sender: FDA-Public Use
  Company Number: FR-BAXTER-2020BAX014592

PATIENT
  Age: 68 Year
  Sex: Male

DRUGS (3)
  1. DEXAMETHASONE [Suspect]
     Active Substance: DEXAMETHASONE
     Indication: Plasma cell myeloma
     Dosage: 20 MG/DOSE 4 DOSE(S)/WEEK 2 WEEK(S)/CYCLE, (TREATMENT LINE NUMBER 4, DURATION: 1.6 MONTHS)
     Route: 065
     Dates: end: 20171124
  2. DOXORUBICIN HYDROCHLORIDE [Suspect]
     Active Substance: DOXORUBICIN HYDROCHLORIDE
     Indication: Plasma cell myeloma
     Dosage: 40 MG/M2/DOSE 1 DOSE(S)/WEEK 1 WEEK(S)/CYCLE, (TREATMENT LINE NUMBER 4, DURATION: 1.6 MONTHS)
     Route: 065
     Dates: end: 20171124
  3. VELCADE [Suspect]
     Active Substance: BORTEZOMIB
     Indication: Plasma cell myeloma
     Dosage: 1 MG/DOSE 2 DOSE(S)/WEEK 2 WEEK(S)/CYCLE, (TREATMENT LINE NUMBER 4, DURATION: 1.6 MONTHS)
     Route: 065
     Dates: end: 20171124

REACTIONS (1)
  - Haemorrhage [Unknown]

NARRATIVE: CASE EVENT DATE: 20171124
